FAERS Safety Report 7743396-5 (Version None)
Quarter: 2011Q3

REPORT INFORMATION
  Report Type: 
  Country: None (occurrence: None)
  Receive Date: 20110906
  Receipt Date: 20110831
  Transmission Date: 20111222
  Serious: Yes (Hospitalization, Other)
  Sender: FDA-Public Use
  Company Number: 2010SP009502

PATIENT
  Age: 25 Year
  Sex: Female
  Weight: 117.028 kg

DRUGS (9)
  1. NUVARING [Suspect]
     Indication: MENSTRUAL DISORDER
     Dosage: QM
     Dates: start: 20050801, end: 20080301
  2. NUVARING [Suspect]
     Indication: CONTRACEPTION
     Dosage: QM
     Dates: start: 20050801, end: 20080301
  3. NUVARING [Suspect]
     Indication: DYSMENORRHOEA
     Dosage: QM
     Dates: start: 20050801, end: 20080301
  4. TREXIMET [Concomitant]
  5. LEVAQUIN [Suspect]
     Indication: PNEUMONIA
     Dosage: 750 MG;QD
     Dates: start: 20080304
  6. COUMADIN [Suspect]
     Indication: THROMBOSIS
     Dates: start: 20080301, end: 20100101
  7. COUMADIN [Suspect]
     Indication: THROMBOSIS PROPHYLAXIS
     Dates: start: 20080301, end: 20100101
  8. IMITREX [Concomitant]
  9. PROZAC [Concomitant]

REACTIONS (16)
  - ATELECTASIS [None]
  - PNEUMONIA [None]
  - TRANSIENT ISCHAEMIC ATTACK [None]
  - CHOLECYSTECTOMY [None]
  - PLEURAL EFFUSION [None]
  - CERVICAL DYSPLASIA [None]
  - PULMONARY EMBOLISM [None]
  - INTERNATIONAL NORMALISED RATIO INCREASED [None]
  - ACTIVATED PARTIAL THROMBOPLASTIN TIME PROLONGED [None]
  - MUSCULOSKELETAL PAIN [None]
  - COMPLICATED MIGRAINE [None]
  - OVARIAN CYST [None]
  - SINUS TACHYCARDIA [None]
  - PROTHROMBIN TIME PROLONGED [None]
  - ENDOMETRIOSIS [None]
  - ANGINA PECTORIS [None]
